FAERS Safety Report 6142731-1 (Version None)
Quarter: 2009Q2

REPORT INFORMATION
  Report Type: 
  Country: None (occurrence: None)
  Receive Date: 20090402
  Receipt Date: 20090402
  Transmission Date: 20091009
  Serious: No
  Sender: FDA-Public Use
  Company Number: None

PATIENT
  Sex: Male
  Weight: 33.1 kg

DRUGS (5)
  1. PEG-L-ASPARAGINASE (PEGASPARAGASE, ONCOSPAR) [Suspect]
     Dosage: 268 UNIT
     Dates: end: 20090317
  2. CYCLOPHOSPHAMIDE [Suspect]
     Dosage: 1150 MG
     Dates: end: 20090303
  3. CYTARABINE [Suspect]
     Dosage: 680 MG
     Dates: end: 20090313
  4. MERCAPTOPURINE [Suspect]
     Dosage: 950 MG
     Dates: end: 20090316
  5. METHOTREXATE [Suspect]
     Dosage: 45 MG
     Dates: end: 20090317

REACTIONS (3)
  - DRUG HYPERSENSITIVITY [None]
  - INFUSION RELATED REACTION [None]
  - RESPIRATORY DISTRESS [None]
